FAERS Safety Report 9866476 (Version 1)
Quarter: 2014Q1

REPORT INFORMATION
  Report Type: Spontaneous
  Country: US (occurrence: US)
  Receive Date: 20140204
  Receipt Date: 20140204
  Transmission Date: 20141002
  Serious: Yes (Hospitalization, Other)
  Sender: FDA-Public Use
  Company Number: US-SUN PHARMACEUTICAL INDUSTRIES LTD-2014SUN00134

PATIENT
  Age: 65 Year
  Sex: Male

DRUGS (12)
  1. LITHIUM CARBONATE TABLETS, USP 300MG [Suspect]
     Indication: PRODUCT USED FOR UNKNOWN INDICATION
     Dosage: 900 MG, QD
     Route: 065
  2. LEVOTHYROXINE [Concomitant]
     Dosage: 0.175 MG, QD
  3. CELECOXIB [Concomitant]
     Dosage: 200 MG, PRN DAILY
  4. ATORVASTATIN [Concomitant]
     Dosage: 400 MG, QD
  5. FLUOXETINE [Concomitant]
     Dosage: 40 MG, QD
  6. BUPROPION [Concomitant]
     Dosage: 200 MG, BID
  7. EZETIMIBE [Concomitant]
     Dosage: 10 MG, QD
  8. DUTASTERIDE [Concomitant]
     Dosage: 0.5 MG, QD
  9. TAMSULOSIN [Concomitant]
     Dosage: 0.4 MG, QD
  10. LIDEX [Concomitant]
     Dosage: UNK, QD
     Route: 061
  11. ASPIRIN [Concomitant]
     Dosage: 81 MG, QD
  12. ESOMEPRAZOLE [Concomitant]
     Dosage: 40 MG, QD

REACTIONS (2)
  - Multiple system atrophy [Recovering/Resolving]
  - Toxicity to various agents [Recovering/Resolving]
